FAERS Safety Report 4642321-3 (Version None)
Quarter: 2005Q2

REPORT INFORMATION
  Report Type: 
  Country: None (occurrence: None)
  Receive Date: 20050420
  Receipt Date: 20050407
  Transmission Date: 20051028
  Serious: Yes (Other)
  Sender: FDA-Public Use
  Company Number: 2005051160

PATIENT
  Age: 65 Year
  Sex: Female

DRUGS (7)
  1. ZITHROMAX [Suspect]
     Indication: PERITONSILLAR ABSCESS
     Dosage: 500 MG (250 MG, BID), ORAL
     Route: 048
     Dates: start: 20050316, end: 20050318
  2. DICLOFENAC SODIUM [Suspect]
     Indication: ILL-DEFINED DISORDER
     Dosage: 75 MG (25 MG, TID), ORAL
     Route: 048
     Dates: start: 20050316
  3. FEXOFENADINE HYDROCHLORIDE [Concomitant]
  4. CODEINE PHOSPHATE (CODEINE PHOSPHATE) [Concomitant]
  5. PLANTAGO MAJOR (PLANTAGO MAJOR) [Concomitant]
  6. CHLORPHENAMINE MALEATE (CHLORPHENAMINE MALEATE) [Concomitant]
  7. ALL OTHER THERAPEUTIC PRODUCTS (ALL OTHER THERAPEUTIC  PRODUCTS) [Concomitant]

REACTIONS (4)
  - CONVULSION [None]
  - DRUG INTERACTION [None]
  - PYREXIA [None]
  - TREMOR [None]
